FAERS Safety Report 24148596 (Version 1)
Quarter: 2024Q3

REPORT INFORMATION
  Report Type: Spontaneous
  Country: CA (occurrence: CA)
  Receive Date: 20240729
  Receipt Date: 20240729
  Transmission Date: 20241017
  Serious: Yes (Life-Threatening, Other)
  Sender: DAIICHI
  Company Number: CA-AstraZeneca-2024A169064

PATIENT
  Sex: Female
  Weight: 60 kg

DRUGS (2)
  1. TRASTUZUMAB DERUXTECAN [Suspect]
     Active Substance: TRASTUZUMAB DERUXTECAN
     Indication: HER2 low breast cancer
     Dosage: 355 MG, ONCE EVERY 3 WK
     Route: 042
  2. TRASTUZUMAB DERUXTECAN [Suspect]
     Active Substance: TRASTUZUMAB DERUXTECAN
     Dosage: 319 MG, ONCE EVERY 3 WK
     Route: 042

REACTIONS (4)
  - Dyspnoea [Unknown]
  - Post procedural infection [Unknown]
  - Vocal cord paralysis [Unknown]
  - Inappropriate schedule of product administration [Unknown]
